FAERS Safety Report 11352680 (Version 1)
Quarter: 2015Q3

REPORT INFORMATION
  Report Type: Spontaneous
  Country: US (occurrence: US)
  Receive Date: 20150807
  Receipt Date: 20150807
  Transmission Date: 20151125
  Serious: No
  Sender: FDA-Public Use
  Company Number: US-JNJFOC-20150607461

PATIENT
  Sex: Female

DRUGS (3)
  1. WOMENS ROGAINE UNSCENTED [Suspect]
     Active Substance: MINOXIDIL
     Route: 061
  2. WOMENS ROGAINE UNSCENTED [Suspect]
     Active Substance: MINOXIDIL
     Indication: ALOPECIA
     Dosage: AS DIRECTED
     Route: 061
     Dates: end: 20150606
  3. NIZORAL [Concomitant]
     Active Substance: KETOCONAZOLE
     Indication: DRY SKIN
     Route: 065

REACTIONS (2)
  - Skin disorder [Unknown]
  - Pruritus [Recovering/Resolving]
